FAERS Safety Report 7425275-6 (Version None)
Quarter: 2011Q2

REPORT INFORMATION
  Report Type: 
  Country: None (occurrence: None)
  Receive Date: 20110420
  Receipt Date: 20101208
  Transmission Date: 20111010
  Serious: Yes (Other)
  Sender: FDA-Public Use
  Company Number: US-BAYER-201031686NA

PATIENT
  Age: 34 Year
  Sex: Female
  Weight: 68.027 kg

DRUGS (7)
  1. VITAMINS NOS [Concomitant]
  2. AMOXICILLIN [Concomitant]
  3. TORADOL [Concomitant]
  4. YASMIN [Suspect]
     Indication: CONTRACEPTION
     Dosage: UNK UNK, UNK
     Route: 048
     Dates: start: 20050301, end: 20051001
  5. YAZ [Suspect]
     Indication: CONTRACEPTION
     Dosage: UNK UNK, UNK
     Route: 048
     Dates: start: 20050301, end: 20051001
  6. DEMEROL [Concomitant]
  7. PHENERGAN HCL [Concomitant]

REACTIONS (2)
  - GALLBLADDER DISORDER [None]
  - CHOLECYSTITIS CHRONIC [None]
